FAERS Safety Report 15536809 (Version 3)
Quarter: 2018Q4

REPORT INFORMATION
  Report Type: Spontaneous
  Country: FR (occurrence: FR)
  Receive Date: 20181022
  Receipt Date: 20181130
  Transmission Date: 20190205
  Serious: Yes (Other)
  Sender: FDA-Public Use
  Company Number: FR-ASTRAZENECA-2018SF25505

PATIENT
  Age: 34 Year
  Sex: Male

DRUGS (9)
  1. MESALAZINE [Suspect]
     Active Substance: MESALAMINE
     Indication: COLITIS MICROSCOPIC
     Route: 065
  2. IRINOTECAN [Suspect]
     Active Substance: IRINOTECAN
     Indication: COLORECTAL CANCER
     Dosage: DOSAGE FORM: UNKNOWN, 1 CYCLICAL
     Route: 065
  3. FOLFIRI [Suspect]
     Active Substance: FLUOROURACIL\IRINOTECAN\LEUCOVORIN
     Indication: COLITIS MICROSCOPIC
     Route: 065
  4. FLUOROURACIL. [Suspect]
     Active Substance: FLUOROURACIL
     Indication: COLITIS MICROSCOPIC
     Dosage: UNSPECIFIED, 1 CYCLICAL
     Route: 065
  5. AFLIBERCEPT [Suspect]
     Active Substance: AFLIBERCEPT
     Indication: COLORECTAL CANCER METASTATIC
     Dosage: DOSAGE FORM: UNSPECIFIED, 1 CYCLICAL
     Route: 065
  6. OXALIPLATIN. [Concomitant]
     Active Substance: OXALIPLATIN
     Indication: COLORECTAL CANCER
     Dosage: DOSAGE FORM: UNKNOWN, 1 CYCLICAL
  7. FOLINIC ACID [Suspect]
     Active Substance: LEUCOVORIN
     Indication: COLORECTAL CANCER
     Dosage: DOSAGE FORM: UNKNOWN, 1 CYCLICAL
     Route: 065
  8. BUDESONIDE. [Suspect]
     Active Substance: BUDESONIDE
     Indication: COLITIS MICROSCOPIC
     Route: 045
  9. BEVACIZUMAB. [Concomitant]
     Active Substance: BEVACIZUMAB
     Indication: COLORECTAL CANCER

REACTIONS (3)
  - Off label use [Unknown]
  - Diarrhoea [Recovering/Resolving]
  - Colitis microscopic [Recovering/Resolving]
